FAERS Safety Report 9688224 (Version 2)
Quarter: 2014Q1

REPORT INFORMATION
  Report Type: Spontaneous
  Country: FR (occurrence: JP)
  Receive Date: 20131114
  Receipt Date: 20140102
  Transmission Date: 20141002
  Serious: No
  Sender: FDA-Public Use
  Company Number: JP-FRI-1000051233

PATIENT
  Age: 68 Year
  Sex: Male

DRUGS (7)
  1. ACAMPROSATE [Suspect]
     Route: 048
     Dates: start: 20130719, end: 20131025
  2. PARIET [Concomitant]
     Dates: start: 20130719, end: 20131025
  3. BLOPRESS [Concomitant]
  4. CYANAMIDE [Concomitant]
     Dates: start: 20130716, end: 20131025
  5. CERCINE [Concomitant]
     Dates: start: 20130716, end: 20130801
  6. ARICEPT [Concomitant]
     Dates: start: 20130722, end: 20130815
  7. FLIVAS [Concomitant]
     Dates: start: 20130805, end: 20130815

REACTIONS (7)
  - Dementia [Unknown]
  - Urinary retention [Recovered/Resolved]
  - Postrenal failure [Recovered/Resolved]
  - Rash generalised [Recovered/Resolved]
  - Pyrexia [Recovered/Resolved]
  - Stomatitis [Recovered/Resolved]
  - Alopecia [Recovered/Resolved]
